FAERS Safety Report 10178886 (Version 1)
Quarter: 2014Q2

REPORT INFORMATION
  Report Type: Spontaneous
  Country: US (occurrence: US)
  Receive Date: 20140519
  Receipt Date: 20140519
  Transmission Date: 20141212
  Serious: No
  Sender: FDA-Public Use
  Company Number: US-TEVA-482409USA

PATIENT
  Age: 33 Year
  Sex: Female
  Weight: 72.19 kg

DRUGS (1)
  1. PARAGARD 380A [Suspect]
     Indication: CONTRACEPTION
     Route: 015
     Dates: start: 20140318, end: 20140502

REACTIONS (4)
  - Muscle spasms [Unknown]
  - Neck pain [Unknown]
  - Headache [Unknown]
  - Device expulsion [Recovered/Resolved]
